FAERS Safety Report 6164635-0 (Version None)
Quarter: 2009Q2

REPORT INFORMATION
  Report Type: 
  Country: None (occurrence: None)
  Receive Date: 20090421
  Receipt Date: 20090406
  Transmission Date: 20091009
  Serious: Yes (Hospitalization)
  Sender: FDA-Public Use
  Company Number: ACO_00538_2009

PATIENT
  Sex: Male
  Weight: 56 kg

DRUGS (4)
  1. TIZANIDINE HCL [Suspect]
     Indication: SPINAL OSTEOARTHRITIS
     Dosage: 1 MG TID ORAL
     Route: 048
     Dates: start: 20080123, end: 20080130
  2. LOXONIN /00890702/ (LOXONIN) (NOT SPECIFIED) [Suspect]
     Indication: SPINAL OSTEOARTHRITIS
     Dosage: 60 MG TID ORAL
     Route: 048
     Dates: start: 20080123, end: 20080130
  3. SELBEX (SELBEX) (NOT SPECIFIED) [Suspect]
     Indication: SPINAL OSTEOARTHRITIS
     Dosage: 50 MG TID ORAL
     Route: 048
     Dates: start: 20080123, end: 20080130
  4. SALAZOPYRIN (SALAZOPYRIN) (NOT SPECIFIED) [Suspect]
     Indication: PROCTITIS
     Dosage: 3 G ORAL
     Route: 048
     Dates: start: 20080118, end: 20080131

REACTIONS (7)
  - ASPARTATE AMINOTRANSFERASE INCREASED [None]
  - BLOOD LACTATE DEHYDROGENASE INCREASED [None]
  - FLUSHING [None]
  - GAMMA-GLUTAMYLTRANSFERASE INCREASED [None]
  - GENERALISED ERYTHEMA [None]
  - LIVER DISORDER [None]
  - PYREXIA [None]
